FAERS Safety Report 15888294 (Version 1)
Quarter: 2019Q1

REPORT INFORMATION
  Report Type: Spontaneous
  Country: US (occurrence: US)
  Receive Date: 20190108
  Receipt Date: 20190108
  Transmission Date: 20190417
  Serious: Yes (Other)
  Sender: FDA-Public Use
  Company Number: None

PATIENT
  Age: 52 Year
  Sex: Female
  Weight: 65.77 kg

DRUGS (5)
  1. VITAMIN D3 [Concomitant]
     Active Substance: CHOLECALCIFEROL
  2. XIIDRA [Suspect]
     Active Substance: LIFITEGRAST
     Indication: DRY EYE
     Dosage: ?          OTHER STRENGTH:0.2 ML EACH;QUANTITY:1 DF DOSAGE FORM;OTHER FREQUENCY:1 DROP EACH EYE;?
     Route: 047
     Dates: start: 20181025, end: 20181112
  3. TURMERIC CURCUMIN COMPLEX [Concomitant]
  4. METFORMIN [Concomitant]
     Active Substance: METFORMIN HYDROCHLORIDE
  5. ULTRA OMEGA-3 [Concomitant]

REACTIONS (4)
  - Diplopia [None]
  - Headache [None]
  - Vision blurred [None]
  - Eye pain [None]

NARRATIVE: CASE EVENT DATE: 20181109
